FAERS Safety Report 23539325 (Version 3)
Quarter: 2024Q1

REPORT INFORMATION
  Report Type: Spontaneous
  Country: CA (occurrence: CA)
  Receive Date: 20240219
  Receipt Date: 20240326
  Transmission Date: 20240410
  Serious: Yes (Other)
  Sender: FDA-Public Use
  Company Number: CA-PFIZER INC-202300214188

PATIENT
  Age: 55 Year
  Sex: Male

DRUGS (3)
  1. XELJANZ [Suspect]
     Active Substance: TOFACITINIB CITRATE
     Indication: Colitis ulcerative
     Dosage: 10 MG, 2X/DAY, INDUCTION: 10MG BID (2XDAY) FOR 8 WEEKS. MAINTENANCE: 5MG BID
     Route: 048
     Dates: start: 20220907, end: 2023
  2. XELJANZ [Suspect]
     Active Substance: TOFACITINIB CITRATE
     Dosage: 5 MG, 2X/DAY
     Route: 048
     Dates: start: 2023
  3. PREDNISONE [Suspect]
     Active Substance: PREDNISONE
     Dosage: UNK

REACTIONS (6)
  - Nephropathy [Unknown]
  - Drug ineffective [Not Recovered/Not Resolved]
  - Glomerular filtration rate increased [Recovering/Resolving]
  - Blood creatinine increased [Recovering/Resolving]
  - Condition aggravated [Unknown]
  - Intentional product misuse [Unknown]

NARRATIVE: CASE EVENT DATE: 20220101
